FAERS Safety Report 8887158 (Version 7)
Quarter: 2013Q2

REPORT INFORMATION
  Report Type: Spontaneous
  Country: US (occurrence: US)
  Receive Date: 20121105
  Receipt Date: 20130524
  Transmission Date: 20140414
  Serious: Yes (Hospitalization, Other)
  Sender: FDA-Public Use
  Company Number: US-009507513-1211USA001613

PATIENT
  Sex: Female
  Weight: 96.15 kg

DRUGS (10)
  1. FOSAMAX [Suspect]
     Indication: OSTEOPENIA
     Dosage: 70 MG, QW
     Route: 048
     Dates: start: 20030103, end: 201003
  2. FOSAMAX [Suspect]
     Dosage: UNK
  3. FOSAMAX [Suspect]
     Indication: OSTEOPOROSIS
     Dosage: UNK
  4. FOSAMAX [Suspect]
     Indication: OSTEOPOROSIS PROPHYLAXIS
  5. FOSAMAX [Suspect]
     Indication: OSTEOPENIA
  6. FOSAMAX PLUS D [Suspect]
     Indication: OSTEOPENIA
     Dosage: 70 MG,/2800IU QW
     Route: 048
     Dates: start: 200806, end: 200808
  7. ALENDRONATE SODIUM [Suspect]
     Dosage: UNK
  8. CORTICOSTEROIDS (UNSPECIFIED) [Concomitant]
     Dosage: UNK
     Dates: start: 1992, end: 2010
  9. CALCIUM (UNSPECIFIED) [Concomitant]
     Indication: OSTEOPENIA
  10. VITAMIN D (UNSPECIFIED) [Concomitant]
     Indication: OSTEOPENIA

REACTIONS (46)
  - Femur fracture [Unknown]
  - Open reduction of fracture [Unknown]
  - Knee arthroplasty [Unknown]
  - Renal failure chronic [Not Recovered/Not Resolved]
  - Surgery [Unknown]
  - Fracture nonunion [Unknown]
  - Foot fracture [Unknown]
  - Low turnover osteopathy [Unknown]
  - Non-cardiac chest pain [Unknown]
  - Anaemia postoperative [Unknown]
  - Device malfunction [Unknown]
  - Hypoxia [Unknown]
  - Electrocardiogram abnormal [Unknown]
  - Joint injury [Unknown]
  - Delirium [Recovered/Resolved]
  - Anaemia postoperative [Unknown]
  - Essential hypertension [Unknown]
  - Sleep apnoea syndrome [Unknown]
  - Hyperlipidaemia [Unknown]
  - Oesophageal motility disorder [Unknown]
  - Hiatus hernia [Unknown]
  - Ventricular dysfunction [Unknown]
  - Intervertebral disc protrusion [Unknown]
  - Lumbar spinal stenosis [Unknown]
  - Osteoarthritis [Unknown]
  - Artificial crown procedure [Unknown]
  - Spinal osteoarthritis [Unknown]
  - Hypothyroidism [Unknown]
  - Irritable bowel syndrome [Unknown]
  - Fluid overload [Unknown]
  - Infection [Unknown]
  - Gait disturbance [Unknown]
  - Wound drainage [Unknown]
  - Stress urinary incontinence [Unknown]
  - Intertrigo [Unknown]
  - Dyspnoea exertional [Unknown]
  - Electrocardiogram T wave abnormal [Unknown]
  - Fatigue [Unknown]
  - Varicose vein [Unknown]
  - Asthenia [Unknown]
  - Back pain [Not Recovered/Not Resolved]
  - Gastrooesophageal reflux disease [Unknown]
  - Nausea [Unknown]
  - Arthralgia [Unknown]
  - Abdominal pain upper [Unknown]
  - Oedema peripheral [Unknown]
